FAERS Safety Report 15843389 (Version 16)
Quarter: 2022Q4

REPORT INFORMATION
  Report Type: Spontaneous
  Country: JP (occurrence: JP)
  Receive Date: 20190118
  Receipt Date: 20221005
  Transmission Date: 20230112
  Serious: Yes (Death, Life-Threatening, Hospitalization, Disabling, Other)
  Sender: FDA-Public Use
  Company Number: JP-MSD-M2019-00272

PATIENT
  Age: 77 Year
  Sex: Male
  Weight: 73 kg

DRUGS (6)
  1. KEYTRUDA [Suspect]
     Active Substance: PEMBROLIZUMAB
     Indication: Bladder cancer
     Dosage: 200 MILLIGRAM, EVERY 3 WEEKS
     Route: 041
     Dates: start: 20181214, end: 20181214
  2. TAMSULOSIN HYDROCHLORIDE [Concomitant]
     Active Substance: TAMSULOSIN HYDROCHLORIDE
     Indication: Dysuria
     Dosage: 0.2 MILLIGRAM, DAILY
     Route: 048
     Dates: start: 20180817, end: 20190108
  3. MIRABEGRON [Concomitant]
     Active Substance: MIRABEGRON
     Indication: Pollakiuria
     Dosage: 50 MILLIGRAM, DAILY
     Route: 048
     Dates: start: 20180817, end: 20190108
  4. REBAMIPIDE [Concomitant]
     Active Substance: REBAMIPIDE
     Indication: Abdominal discomfort
     Dosage: 100 MILLIGRAM, 3 TIMES A DAY
     Route: 048
     Dates: start: 20180817, end: 20190108
  5. ASVERIN (TIPEPIDINE HIBENZATE) [Concomitant]
     Active Substance: TIPEPIDINE HIBENZATE
     Indication: Nasopharyngitis
     Dosage: 40 MILLIGRAM, 3 TIMES PER DAY
     Route: 048
     Dates: start: 20181215, end: 20181220
  6. LOXOPROFEN SODIUM [Concomitant]
     Active Substance: LOXOPROFEN SODIUM
     Indication: Abdominal pain lower
     Dosage: UNK, PRESCRIBED AS NEEDED
     Dates: start: 20181215

REACTIONS (14)
  - Immune-mediated myocarditis [Fatal]
  - Myasthenia gravis [Fatal]
  - Troponin T increased [Not Recovered/Not Resolved]
  - Malignant neoplasm progression [Recovering/Resolving]
  - Immune-mediated hypothyroidism [Unknown]
  - Hepatic function abnormal [Unknown]
  - Alanine aminotransferase increased [Not Recovered/Not Resolved]
  - Aspartate aminotransferase increased [Recovering/Resolving]
  - Blood creatinine increased [Not Recovered/Not Resolved]
  - Blood creatine phosphokinase increased [Recovering/Resolving]
  - Chronic kidney disease [Unknown]
  - Interstitial lung disease [Unknown]
  - Myositis [Unknown]
  - Glucose tolerance impaired [Unknown]

NARRATIVE: CASE EVENT DATE: 20181228
